FAERS Safety Report 5463512-8 (Version None)
Quarter: 2007Q3

REPORT INFORMATION
  Report Type: 
  Country: None (occurrence: None)
  Receive Date: 20070920
  Receipt Date: 20070910
  Transmission Date: 20080115
  Serious: Yes (Other)
  Sender: FDA-Public Use
  Company Number: US-PFIZER INC-2007075810

PATIENT
  Sex: Female
  Weight: 75 kg

DRUGS (5)
  1. AROMASIN [Suspect]
     Indication: BREAST CANCER
     Route: 048
  2. CALCIUM [Concomitant]
  3. ACTONEL [Concomitant]
  4. DAILY VITAMINS [Concomitant]
  5. ASPIRIN [Concomitant]

REACTIONS (3)
  - ARTHRALGIA [None]
  - BLOOD PRESSURE DIASTOLIC INCREASED [None]
  - INSOMNIA [None]
